FAERS Safety Report 21128933 (Version 2)
Quarter: 2022Q3

REPORT INFORMATION
  Report Type: Report from Study
  Country: KR (occurrence: KR)
  Receive Date: 20220725
  Receipt Date: 20220815
  Transmission Date: 20221026
  Serious: Yes (Hospitalization, Other)
  Sender: FDA-Public Use
  Company Number: KR-002147023-NVSC2022KR117433

PATIENT

DRUGS (21)
  1. RUXOLITINIB [Suspect]
     Active Substance: RUXOLITINIB
     Indication: Primary myelofibrosis
     Dosage: 20 MG, BID
     Route: 048
     Dates: start: 20220307, end: 20220418
  2. RUXOLITINIB [Suspect]
     Active Substance: RUXOLITINIB
     Dosage: 15 MG, BID
     Route: 048
     Dates: start: 20220419
  3. JARDIANCE [Concomitant]
     Active Substance: EMPAGLIFLOZIN
     Indication: Prophylaxis
     Dosage: 10 MG
     Route: 048
     Dates: start: 20220114
  4. JARDIANCE [Concomitant]
     Active Substance: EMPAGLIFLOZIN
     Dosage: 10 MG, QD
     Route: 048
     Dates: start: 20220207
  5. LASIX [Concomitant]
     Active Substance: FUROSEMIDE
     Indication: Coronary artery disease
     Dosage: 40 MG, QD
     Route: 048
     Dates: start: 20220207, end: 20220404
  6. EDOXABAN TOSYLATE [Concomitant]
     Active Substance: EDOXABAN TOSYLATE
     Indication: Coronary artery disease
     Dosage: 30 MG
     Route: 048
     Dates: start: 20220114
  7. EDOXABAN TOSYLATE [Concomitant]
     Active Substance: EDOXABAN TOSYLATE
     Dosage: 30 MG, QD
     Route: 048
     Dates: start: 20220207
  8. NEBISTOL [Concomitant]
     Indication: Coronary artery disease
     Dosage: 2.5 MG, QD
     Route: 048
     Dates: start: 20220207
  9. DIOVAN [Concomitant]
     Active Substance: VALSARTAN
     Indication: Coronary artery disease
     Dosage: 80 MG, QD
     Route: 048
     Dates: start: 20220207, end: 20220404
  10. ALDACTONE [Concomitant]
     Active Substance: SPIRONOLACTONE
     Indication: Coronary artery disease
     Dosage: 25 MG, QD
     Route: 048
     Dates: start: 20220207, end: 20220404
  11. ELROTON [Concomitant]
     Indication: Coronary artery disease
     Dosage: 20 MG, QD
     Route: 048
     Dates: start: 20220207, end: 20220404
  12. TORSEMIDE [Concomitant]
     Active Substance: TORSEMIDE
     Indication: Coronary artery disease
     Dosage: 5 MG
     Route: 048
     Dates: start: 20220114
  13. TORSEMIDE [Concomitant]
     Active Substance: TORSEMIDE
     Dosage: 5 MG, QD
     Route: 048
     Dates: start: 20220404
  14. MAGNESIUM HYDROXIDE [Concomitant]
     Active Substance: MAGNESIUM HYDROXIDE
     Indication: Prophylaxis
     Dosage: 500 MG, QD
     Route: 048
     Dates: start: 20220505, end: 20220509
  15. LEVODROPROPIZINE [Concomitant]
     Active Substance: LEVODROPROPIZINE
     Indication: Coronavirus infection
     Dosage: 60 MG, QD
     Route: 048
     Dates: start: 20220505, end: 20220523
  16. DICHLOZID [Concomitant]
     Indication: Coronary artery disease
     Dosage: 12.5 MG, QD
     Route: 048
     Dates: start: 20220506, end: 20220523
  17. AVOTERID [Concomitant]
     Indication: Prophylaxis
     Dosage: 0.5 MG, QD
     Route: 048
     Dates: start: 20220507, end: 20220523
  18. AVOTERID [Concomitant]
     Indication: Benign prostatic hyperplasia
     Dosage: 0.5 MG
     Route: 048
     Dates: start: 20220523
  19. MYTONIN [BENZYDAMINE HYDROCHLORIDE] [Concomitant]
     Indication: Benign prostatic hyperplasia
     Dosage: 50 MG, QD
     Route: 048
     Dates: start: 20220507, end: 20220523
  20. MYTONIN [BENZYDAMINE HYDROCHLORIDE] [Concomitant]
     Dosage: 25 MG
     Route: 048
     Dates: start: 20220523
  21. HARNAL [Concomitant]
     Active Substance: TAMSULOSIN HYDROCHLORIDE
     Indication: Product used for unknown indication
     Dosage: 0.2 MG
     Route: 065
     Dates: start: 20220523

REACTIONS (5)
  - Anaemia [Unknown]
  - Coronavirus infection [Recovered/Resolved]
  - Hypotension [Recovered/Resolved]
  - Pulmonary oedema [Recovered/Resolved]
  - Thrombocytopenia [Recovered/Resolved]

NARRATIVE: CASE EVENT DATE: 20220328
